FAERS Safety Report 6413963-X (Version None)
Quarter: 2009Q4

REPORT INFORMATION
  Report Type: 
  Country: None (occurrence: None)
  Receive Date: 20091022
  Receipt Date: 20091022
  Transmission Date: 20100525
  Serious: Yes (Hospitalization)
  Sender: FDA-Public Use
  Company Number: None

PATIENT
  Sex: Female
  Weight: 68.0396 kg

DRUGS (15)
  1. RITUXAN [Suspect]
     Indication: B-CELL LYMPHOMA
     Dosage: 375 MG/M2 Q2WEEKS INTRAVENOUS
     Route: 042
     Dates: start: 20090806
  2. CYCLOPHOSPHAMIDE [Suspect]
     Indication: B-CELL LYMPHOMA
     Dosage: 750 MG/M2 Q2WEEKS INTRAVENOUS
     Route: 042
     Dates: start: 20090806
  3. DOXORUBICIN HCL [Suspect]
     Indication: B-CELL LYMPHOMA
     Dosage: 50MG/M2 Q2WEEKS INTRAVENOUS
     Route: 042
     Dates: start: 20090806
  4. VINCRISTINE [Suspect]
     Indication: B-CELL LYMPHOMA
     Dosage: 2MG MAX Q2WEEKS INTRAVENOUS
     Route: 042
     Dates: start: 20090806
  5. PREDNISONE TAB [Suspect]
     Indication: B-CELL LYMPHOMA
     Dosage: 100 MG DAY1-5 ORAL
     Route: 048
     Dates: start: 20090806, end: 20090810
  6. NEULASTA [Suspect]
     Indication: B-CELL LYMPHOMA
     Dosage: DAY 2
     Dates: start: 20090806
  7. ACETAMINOPHEN [Concomitant]
  8. ALBUTEROL [Concomitant]
  9. ALLOPURINOL [Concomitant]
  10. UTALOPRAM [Concomitant]
  11. COLACE [Concomitant]
  12. FLUTICASONE [Concomitant]
  13. PRILOSEC [Concomitant]
  14. LORAZEPAM [Concomitant]
  15. COMPAZINE [Concomitant]

REACTIONS (2)
  - PLEURAL EFFUSION [None]
  - VOCAL CORD PARESIS [None]
